FAERS Safety Report 7875746-3 (Version None)
Quarter: 2011Q4

REPORT INFORMATION
  Report Type: 
  Country: None (occurrence: None)
  Receive Date: 20111031
  Receipt Date: 20111026
  Transmission Date: 20120403
  Serious: Yes (Hospitalization)
  Sender: FDA-Public Use
  Company Number: US-B.I. PHARMACEUTICALS,INC./RIDGEFIELD-2011-BP-21341BP

PATIENT
  Sex: Female
  Weight: 44 kg

DRUGS (19)
  1. PRADAXA [Suspect]
     Indication: ATRIAL FIBRILLATION
     Dosage: 300 MG
     Route: 048
     Dates: start: 20110519, end: 20110812
  2. LEVOTHYROXINE SODIUM [Concomitant]
     Dosage: 37.5 MG
  3. ASCORBIC ACID [Concomitant]
  4. CITRACAL [Concomitant]
  5. POTASSIUM [Concomitant]
  6. VITAMIN B-12 [Concomitant]
  7. BATEMADINE [Concomitant]
     Dosage: 1 MG
  8. TOPROL-XL [Concomitant]
     Dosage: 50 MG
  9. ALLOPURINOL [Concomitant]
  10. ALPHA LIPOIC ACID [Concomitant]
  11. METFORMIN HCL [Concomitant]
     Dosage: 1700 MG
  12. GLUCOSAMINE CONDITION [Concomitant]
  13. GLIPIZIDE [Concomitant]
     Dosage: 40 MG
  14. GEMFIBROZIL [Concomitant]
     Dosage: 600 MG
  15. CENTRUM SILVER [Concomitant]
  16. COZAAR [Concomitant]
     Dosage: 100 MG
  17. PRADAXA [Suspect]
     Indication: DEEP VEIN THROMBOSIS
  18. PRADAXA [Suspect]
     Indication: ANTICOAGULANT THERAPY
  19. FISH OIL [Concomitant]

REACTIONS (2)
  - RECTAL HAEMORRHAGE [None]
  - HAEMOGLOBIN DECREASED [None]
